FAERS Safety Report 16525627 (Version 4)
Quarter: 2020Q1

REPORT INFORMATION
  Report Type: Spontaneous
  Country: US (occurrence: US)
  Receive Date: 20190703
  Receipt Date: 20200302
  Transmission Date: 20200409
  Serious: No
  Sender: FDA-Public Use
  Company Number: US-SA-2019SA174392

PATIENT
  Age: 14 Year
  Sex: Female

DRUGS (1)
  1. DUPIXENT [Suspect]
     Active Substance: DUPILUMAB
     Indication: DERMATITIS ATOPIC
     Dosage: UNK
     Route: 058
     Dates: start: 201712

REACTIONS (8)
  - Pruritus allergic [Unknown]
  - Rash [Unknown]
  - Pruritus [Unknown]
  - Product use issue [Unknown]
  - Injection site mass [Unknown]
  - Ligament sprain [Unknown]
  - Dermatitis atopic [Unknown]
  - Unevaluable event [Unknown]

NARRATIVE: CASE EVENT DATE: 20190621
